FAERS Safety Report 19763783 (Version 2)
Quarter: 2021Q3

REPORT INFORMATION
  Report Type: Spontaneous
  Country: NA (occurrence: NA)
  Receive Date: 20210830
  Receipt Date: 20210909
  Transmission Date: 20211014
  Serious: Yes (Other)
  Sender: FDA-Public Use
  Company Number: NVSC2021NA171438

PATIENT
  Age: 63 Year
  Sex: Female
  Weight: 72 kg

DRUGS (4)
  1. FEMARA [Suspect]
     Active Substance: LETROZOLE
     Indication: HORMONE RECEPTOR POSITIVE BREAST CANCER
     Dosage: UNK
     Route: 048
     Dates: start: 20200313, end: 20200714
  2. AFINITOR [Suspect]
     Active Substance: EVEROLIMUS
     Indication: BREAST CANCER
     Dosage: 25 MG
     Route: 065
     Dates: start: 20200720, end: 20210205
  3. AFINITOR [Suspect]
     Active Substance: EVEROLIMUS
     Indication: HORMONE RECEPTOR POSITIVE BREAST CANCER
     Dosage: 10 MG
     Route: 048
     Dates: start: 20200720, end: 20210205
  4. TAMOXIFEN [Suspect]
     Active Substance: TAMOXIFEN
     Indication: HORMONE RECEPTOR POSITIVE BREAST CANCER
     Dosage: UNK
     Route: 065

REACTIONS (35)
  - Metastases to liver [Unknown]
  - Lung opacity [Unknown]
  - Anion gap increased [Recovered/Resolved]
  - Gamma-glutamyltransferase increased [Not Recovered/Not Resolved]
  - Carbohydrate antigen 15-3 increased [Not Recovered/Not Resolved]
  - Red blood cell count increased [Recovered/Resolved]
  - Blood cholesterol increased [Not Recovered/Not Resolved]
  - Blood glucose increased [Not Recovered/Not Resolved]
  - Blood sodium decreased [Recovered/Resolved]
  - Blood bilirubin increased [Not Recovered/Not Resolved]
  - Blood bilirubin unconjugated increased [Not Recovered/Not Resolved]
  - Hormone receptor positive breast cancer [Unknown]
  - Glomerular filtration rate decreased [Not Recovered/Not Resolved]
  - Haemoglobin increased [Recovered/Resolved]
  - Malignant neoplasm progression [Unknown]
  - Carbon dioxide decreased [Recovered/Resolved]
  - Total cholesterol/HDL ratio decreased [Not Recovered/Not Resolved]
  - Red blood cell count increased [Recovered/Resolved]
  - Carcinoembryonic antigen increased [Not Recovered/Not Resolved]
  - Neuropathy peripheral [Recovering/Resolving]
  - Blood chloride decreased [Recovered/Resolved]
  - Carbon dioxide decreased [Recovered/Resolved]
  - Blood triglycerides increased [Not Recovered/Not Resolved]
  - High density lipoprotein decreased [Not Recovered/Not Resolved]
  - Haemoglobin increased [Recovered/Resolved]
  - Blood sodium decreased [Recovered/Resolved]
  - Glycosylated haemoglobin increased [Not Recovered/Not Resolved]
  - Haemoglobin increased [Recovered/Resolved]
  - Haematocrit increased [Not Recovered/Not Resolved]
  - Red cell distribution width increased [Not Recovered/Not Resolved]
  - Basophil count increased [Recovered/Resolved]
  - Diabetes mellitus [Recovering/Resolving]
  - Bilirubin conjugated increased [Not Recovered/Not Resolved]
  - Mean cell haemoglobin decreased [Recovered/Resolved]
  - Erythroblast count increased [Not Recovered/Not Resolved]

NARRATIVE: CASE EVENT DATE: 20200709
